FAERS Safety Report 7322014-4 (Version None)
Quarter: 2011Q1

REPORT INFORMATION
  Report Type: 
  Country: None (occurrence: None)
  Receive Date: 20110228
  Receipt Date: 20110222
  Transmission Date: 20110831
  Serious: No
  Sender: FDA-Public Use
  Company Number: US-PFIZER INC-2011038981

PATIENT
  Sex: Female
  Weight: 24.943 kg

DRUGS (3)
  1. ZYVOX [Suspect]
     Dosage: 600 MG, DAILY
     Route: 048
     Dates: start: 20110221
  2. WARFARIN [Concomitant]
     Dosage: UNK
  3. ZYVOX [Suspect]
     Dosage: 600 MG, 2X/DAY
     Route: 048
     Dates: start: 20110219

REACTIONS (1)
  - FLANK PAIN [None]
